FAERS Safety Report 6609256-8 (Version None)
Quarter: 2010Q1

REPORT INFORMATION
  Report Type: 
  Country: None (occurrence: None)
  Receive Date: 20100223
  Receipt Date: 20100218
  Transmission Date: 20100710
  Serious: Yes (Hospitalization)
  Sender: FDA-Public Use
  Company Number: 1000011932

PATIENT
  Age: 60 Year
  Sex: Male

DRUGS (6)
  1. NAMENDA [Suspect]
     Indication: DEMENTIA
     Dosage: 15 MG DAILY, ORAL
     Route: 048
  2. SEROQUEL [Concomitant]
  3. ARICEPT [Concomitant]
  4. PRILOSEC OTC [Concomitant]
  5. LASIX [Concomitant]
  6. TRICOR [Concomitant]

REACTIONS (3)
  - DEHYDRATION [None]
  - DERMATITIS [None]
  - MENTAL STATUS CHANGES [None]
